FAERS Safety Report 7603288-9 (Version None)
Quarter: 2011Q3

REPORT INFORMATION
  Report Type: 
  Country: None (occurrence: None)
  Receive Date: 20110712
  Receipt Date: 20110629
  Transmission Date: 20111222
  Serious: Yes (Hospitalization, Other)
  Sender: FDA-Public Use
  Company Number: PHFR2011GB02615

PATIENT
  Sex: Female

DRUGS (2)
  1. ARIPIPRAZOLE [Concomitant]
     Indication: SCHIZOPHRENIA
     Dosage: 20 MG, DAILY
  2. CLOZAPINE [Suspect]
     Indication: SCHIZOPHRENIA SIMPLE
     Dosage: 400 MG, DAILY
     Route: 048
     Dates: start: 20091216

REACTIONS (5)
  - FALL [None]
  - MUSCLE TWITCHING [None]
  - SYNCOPE [None]
  - EPILEPSY [None]
  - CONVULSION [None]
